FAERS Safety Report 26162104 (Version 1)
Quarter: 2025Q4

REPORT INFORMATION
  Report Type: Spontaneous
  Country: US (occurrence: US)
  Receive Date: 20251216
  Receipt Date: 20251216
  Transmission Date: 20260117
  Serious: No
  Sender: ALCON
  Company Number: US-ALCON LABORATORIES-ALC2025US002842

PATIENT
  Sex: Female

DRUGS (1)
  1. EYSUVIS [Suspect]
     Active Substance: LOTEPREDNOL ETABONATE
     Indication: Product used for unknown indication
     Dosage: 1 DROP INTO EACH EYE 4 TIMES DAILY FOR 1 WEEK,  3 TIMES A DAY FOR 1 WEEK, TWICE A DAY FOR 1 WEEK, TH
     Route: 047

REACTIONS (1)
  - Product use issue [Unknown]
